FAERS Safety Report 20491178 (Version 1)
Quarter: 2022Q1

REPORT INFORMATION
  Report Type: Spontaneous
  Country: US (occurrence: None)
  Receive Date: 20220218
  Receipt Date: 20220218
  Transmission Date: 20220423
  Serious: Yes (Hospitalization)
  Sender: FDA-Public Use
  Company Number: None

PATIENT
  Age: 39 Year
  Sex: Male
  Weight: 63 kg

DRUGS (1)
  1. SOTROVIMAB [Suspect]
     Active Substance: SOTROVIMAB
     Indication: COVID-19
     Dosage: OTHER FREQUENCY : ONCE;?
     Route: 041
     Dates: start: 20220215, end: 20220215

REACTIONS (6)
  - Dyspnoea [None]
  - Chest pain [None]
  - Paraesthesia [None]
  - Infusion related reaction [None]
  - Paralysis [None]
  - Conversion disorder [None]

NARRATIVE: CASE EVENT DATE: 20220215
